FAERS Safety Report 9801767 (Version 2)
Quarter: 2014Q1

REPORT INFORMATION
  Report Type: Spontaneous
  Country: US (occurrence: US)
  Receive Date: 20140107
  Receipt Date: 20140207
  Transmission Date: 20141002
  Serious: Yes (Other)
  Sender: FDA-Public Use
  Company Number: US-GLAXOSMITHKLINE-A1055462A

PATIENT
  Age: 70 Year
  Sex: Female

DRUGS (3)
  1. LAMICTAL [Suspect]
     Indication: PRODUCT USED FOR UNKNOWN INDICATION
     Dosage: 300MG PER DAY
     Route: 065
  2. WELLBUTRIN XL [Suspect]
     Indication: PRODUCT USED FOR UNKNOWN INDICATION
     Dosage: 450MG PER DAY
     Route: 065
  3. NAMENDA [Suspect]
     Indication: COGNITIVE DISORDER
     Dosage: 5MG PER DAY
     Route: 048
     Dates: start: 20131118, end: 20131125

REACTIONS (4)
  - Stevens-Johnson syndrome [Recovering/Resolving]
  - Pruritus generalised [Recovering/Resolving]
  - Rash pruritic [Recovering/Resolving]
  - Scratch [Recovering/Resolving]
